FAERS Safety Report 8947126 (Version 2)
Quarter: 2013Q1

REPORT INFORMATION
  Report Type: Spontaneous
  Country: US (occurrence: US)
  Receive Date: 20121205
  Receipt Date: 20130110
  Transmission Date: 20140127
  Serious: No
  Sender: FDA-Public Use
  Company Number: US-PFIZER INC-2012304122

PATIENT
  Age: 61 Year
  Sex: Female
  Weight: 56.69 kg

DRUGS (3)
  1. EFFEXOR XR [Suspect]
     Indication: DEPRESSION
     Dosage: 150 MG, DAILY
  2. NEURONTIN [Suspect]
     Indication: PETIT MAL EPILEPSY
     Dosage: 300 MG, 4X/DAY
  3. MOBIC [Concomitant]
     Dosage: 15 MG, DAILY

REACTIONS (1)
  - Gastrointestinal disorder [Not Recovered/Not Resolved]
